FAERS Safety Report 6507408-9 (Version None)
Quarter: 2009Q4

REPORT INFORMATION
  Report Type: 
  Country: None (occurrence: None)
  Receive Date: 20091221
  Receipt Date: 20091118
  Transmission Date: 20100525
  Serious: No
  Sender: FDA-Public Use
  Company Number: US-BAYER-200938532NA

PATIENT
  Age: 39 Year
  Sex: Female
  Weight: 63 kg

DRUGS (3)
  1. YAZ [Suspect]
     Indication: CONTRACEPTION
     Route: 048
     Dates: start: 20090401, end: 20090901
  2. YASMIN [Suspect]
     Indication: DRUG USE FOR UNKNOWN INDICATION
     Route: 048
  3. OCELLA [Suspect]
     Indication: DRUG USE FOR UNKNOWN INDICATION
     Route: 048

REACTIONS (8)
  - AMENORRHOEA [None]
  - DRUG HYPERSENSITIVITY [None]
  - FATIGUE [None]
  - HEADACHE [None]
  - MALAISE [None]
  - MENSTRUATION IRREGULAR [None]
  - MIGRAINE [None]
  - WEIGHT INCREASED [None]
